FAERS Safety Report 8019405-5 (Version None)
Quarter: 2012Q1

REPORT INFORMATION
  Report Type: 
  Country: None (occurrence: None)
  Receive Date: 20120103
  Receipt Date: 20111227
  Transmission Date: 20120608
  Serious: Yes (Other)
  Sender: FDA-Public Use
  Company Number: PHEH2011US07331

PATIENT
  Sex: Female

DRUGS (3)
  1. EXTAVIA [Suspect]
     Dosage: 0.125 MG, QOD
     Route: 058
     Dates: start: 20111018
  2. EXTAVIA [Suspect]
     Indication: MULTIPLE SCLEROSIS
     Dosage: 0.062 MG, QOD
     Route: 058
     Dates: start: 20111011
  3. EXTAVIA [Suspect]
     Dosage: 0.25 MG, QOD
     Route: 058

REACTIONS (22)
  - PAIN [None]
  - CEREBROVASCULAR ACCIDENT [None]
  - HEMIPARESIS [None]
  - DYSPHEMIA [None]
  - PYREXIA [None]
  - ANXIETY [None]
  - INJECTION SITE MASS [None]
  - DYSARTHRIA [None]
  - NAUSEA [None]
  - BLINDNESS [None]
  - WHITE BLOOD CELL COUNT ABNORMAL [None]
  - INSOMNIA [None]
  - INJECTION SITE ERYTHEMA [None]
  - NERVOUSNESS [None]
  - INJECTION SITE PAIN [None]
  - PSYCHOMOTOR HYPERACTIVITY [None]
  - NASOPHARYNGITIS [None]
  - INFLUENZA LIKE ILLNESS [None]
  - INJECTION SITE REACTION [None]
  - BONE PAIN [None]
  - CHILLS [None]
  - ARTHRALGIA [None]
